FAERS Safety Report 8965612 (Version 1)
Quarter: 2012Q4

REPORT INFORMATION
  Report Type: Spontaneous
  Country: DE (occurrence: None)
  Receive Date: 20121205
  Receipt Date: 20121205
  Transmission Date: 20130627
  Serious: Yes (Other)
  Sender: FDA-Public Use
  Company Number: AUR-APL-2012-05107

PATIENT
  Age: 27 Year
  Sex: Female
  Weight: 98 kg

DRUGS (3)
  1. LAMOTRIGINE (LAMOTRIGINE) [Suspect]
     Indication: EPILEPSY
     Dosage: (200 mg, 1 D), Oral
     Route: 048
  2. HUMALOG (INSULIN) [Concomitant]
  3. FOLSAN [Suspect]

REACTIONS (5)
  - Gestational diabetes [None]
  - Pre-eclampsia [None]
  - Polyhydramnios [None]
  - Exposure during pregnancy [None]
  - Caesarean section [None]
